FAERS Safety Report 11524271 (Version 1)
Quarter: 2015Q3

REPORT INFORMATION
  Report Type: Spontaneous
  Country: US (occurrence: US)
  Receive Date: 20150918
  Receipt Date: 20150918
  Transmission Date: 20151125
  Serious: No
  Sender: FDA-Public Use
  Company Number: US-ROCHE-747127

PATIENT
  Sex: Female

DRUGS (2)
  1. RIBASPHERE [Suspect]
     Active Substance: RIBAVIRIN
     Indication: PRODUCT USED FOR UNKNOWN INDICATION
     Dosage: IN DIVIDED DOSES 3/3
     Route: 065
  2. PEGASYS [Suspect]
     Active Substance: PEGINTERFERON ALFA-2A
     Indication: PRODUCT USED FOR UNKNOWN INDICATION
     Dosage: FORM: PRE-FILLED SYRINGE
     Route: 065

REACTIONS (2)
  - Depression [Not Recovered/Not Resolved]
  - Abdominal pain [Not Recovered/Not Resolved]
